FAERS Safety Report 13184561 (Version 1)
Quarter: 2017Q1

REPORT INFORMATION
  Report Type: Other
  Country: None (occurrence: US)
  Receive Date: 20170203
  Receipt Date: 20170203
  Transmission Date: 20170428
  Serious: Yes (Congenital Anomaly, Other)
  Sender: FDA-Public Use
  Company Number: US-MEDAC PHARMA, INC.-1062706

PATIENT

DRUGS (1)
  1. METHOTREXATE. [Suspect]
     Active Substance: METHOTREXATE
     Indication: ECTOPIC PREGNANCY TERMINATION

REACTIONS (6)
  - Meningomyelocele [None]
  - Talipes [None]
  - Craniosynostosis [None]
  - Arnold-Chiari malformation [None]
  - Foetal methotrexate syndrome [None]
  - Foetal exposure during pregnancy [None]
